FAERS Safety Report 4698550-6 (Version None)
Quarter: 2005Q2

REPORT INFORMATION
  Report Type: 
  Country: None (occurrence: None)
  Receive Date: 20050622
  Receipt Date: 20050613
  Transmission Date: 20051028
  Serious: Yes (Hospitalization, Other)
  Sender: FDA-Public Use
  Company Number: 2005077579

PATIENT
  Age: 55 Year
  Sex: Female

DRUGS (2)
  1. BEXTRA [Suspect]
     Indication: NECK PAIN
     Dosage: UNKNOWN (1 IN 1 D); UNKNOWN
  2. ALL OTHER THERAPEUTIC PRODUCTS [Concomitant]

REACTIONS (1)
  - BLISTER [None]
